FAERS Safety Report 22930845 (Version 4)
Quarter: 2023Q4

REPORT INFORMATION
  Report Type: Spontaneous
  Country: US (occurrence: US)
  Receive Date: 20230911
  Receipt Date: 20231128
  Transmission Date: 20240110
  Serious: No
  Sender: FDA-Public Use
  Company Number: US-PFIZER INC-PV202300146387

PATIENT
  Age: 72 Year
  Sex: Female
  Weight: 52.8 kg

DRUGS (4)
  1. RETACRIT [Suspect]
     Active Substance: EPOETIN ALFA-EPBX
     Indication: Chronic kidney disease
     Dosage: 20000 IU, EVERY 2 WEEKS
     Route: 058
  2. RETACRIT [Suspect]
     Active Substance: EPOETIN ALFA-EPBX
     Indication: Nephrogenic anaemia
     Dosage: 20000 IU, MONTHLY (EVERY 30 DAYS)
     Dates: start: 20230112
  3. COREG [Concomitant]
     Active Substance: CARVEDILOL
     Dosage: 25 MG, 2X/DAY
  4. LASIX [Concomitant]
     Active Substance: FUROSEMIDE
     Dosage: 20 MG, TWICE A DAY, 3 TIMES A WEEK

REACTIONS (4)
  - Haemoglobin decreased [Unknown]
  - Blood pressure increased [Unknown]
  - Weight increased [Unknown]
  - Off label use [Unknown]
